FAERS Safety Report 12121350 (Version 1)
Quarter: 2016Q1

REPORT INFORMATION
  Report Type: Spontaneous
  Country: US (occurrence: US)
  Receive Date: 20160226
  Receipt Date: 20160226
  Transmission Date: 20160526
  Serious: No
  Sender: FDA-Public Use
  Company Number: US-ALLERGAN-1418256US

PATIENT
  Age: 77 Year
  Sex: Female

DRUGS (6)
  1. LOSARTIN [Concomitant]
     Active Substance: LOSARTAN
  2. REFRESH OPTIVE SENSITIVE [Suspect]
     Active Substance: CARBOXYMETHYLCELLULOSE SODIUM\GLYCERIN
     Indication: DRY EYE
     Dosage: 2 GTT, SINGLE
     Route: 047
     Dates: start: 20140813, end: 20140813
  3. LITHIUM. [Concomitant]
     Active Substance: LITHIUM
     Dosage: 1 UNK, UNK
     Route: 048
  4. PRAVASTATIN [Concomitant]
     Active Substance: PRAVASTATIN\PRAVASTATIN SODIUM
  5. TYLENOL [Concomitant]
     Active Substance: ACETAMINOPHEN
  6. VITAMIN D3 [Concomitant]
     Active Substance: CHOLECALCIFEROL
     Dosage: 2000 IU, QHS
     Route: 048

REACTIONS (2)
  - Erythema of eyelid [Recovered/Resolved]
  - Erythema [Recovered/Resolved]
